FAERS Safety Report 4833469-9 (Version None)
Quarter: 2005Q4

REPORT INFORMATION
  Report Type: 
  Country: None (occurrence: None)
  Receive Date: 20051114
  Receipt Date: 20051102
  Transmission Date: 20060501
  Serious: No
  Sender: FDA-Public Use
  Company Number: 2005058601

PATIENT
  Age: 53 Year
  Sex: Male

DRUGS (6)
  1. AZITHROMYCIN [Suspect]
     Indication: INFECTION
     Dosage: UNKNOWN, ORAL
     Route: 048
     Dates: start: 20050120, end: 20050124
  2. LAMICTAL [Suspect]
     Indication: BIPOLAR I DISORDER
     Dosage: UNKNOWN, ORAL
     Route: 048
     Dates: start: 20040719, end: 20050124
  3. OLANZAPINE [Suspect]
     Indication: BIPOLAR I DISORDER
     Dosage: UNKNOWN (10 MG), ORAL
     Route: 048
     Dates: start: 20050118, end: 20050124
  4. AZITHROMYCIN [Concomitant]
  5. LAMICTAL [Concomitant]
  6. OLANZAPINE [Concomitant]

REACTIONS (1)
  - RASH GENERALISED [None]
